FAERS Safety Report 11068354 (Version 1)
Quarter: 2015Q2

REPORT INFORMATION
  Report Type: Spontaneous
  Country: US (occurrence: None)
  Receive Date: 20150424
  Receipt Date: 20150424
  Transmission Date: 20150821
  Serious: Yes (Disabling, Other)
  Sender: FDA-Public Use
  Company Number: None

PATIENT
  Age: 47 Year
  Sex: Female
  Weight: 113.4 kg

DRUGS (8)
  1. DIGESTIVE ENZYMES [Concomitant]
     Active Substance: UNSPECIFIED INGREDIENT
  2. PHENYTOIN SODIUM. [Suspect]
     Active Substance: PHENYTOIN SODIUM
     Indication: SEIZURE
  3. ACIDOPHILUS [Concomitant]
     Active Substance: LACTOBACILLUS ACIDOPHILUS
  4. PHENABARBITAL [Concomitant]
  5. AMLODIPINE BESYLATE. [Concomitant]
     Active Substance: AMLODIPINE BESYLATE
  6. PRAVASTATIN [Concomitant]
     Active Substance: PRAVASTATIN\PRAVASTATIN SODIUM
  7. PHENYTOIN SODIUM EXTENDED [Concomitant]
     Active Substance: PHENYTOIN SODIUM
  8. LEVOTHYROXINE [Concomitant]
     Active Substance: LEVOTHYROXINE

REACTIONS (12)
  - Mood altered [None]
  - Poor quality sleep [None]
  - Muscle twitching [None]
  - Balance disorder [None]
  - Hypersensitivity [None]
  - Product formulation issue [None]
  - Confusional state [None]
  - Urticaria [None]
  - Burns second degree [None]
  - Clumsiness [None]
  - Amnesia [None]
  - Condition aggravated [None]
